FAERS Safety Report 12902444 (Version 1)
Quarter: 2016Q4

REPORT INFORMATION
  Report Type: Report from Study
  Country: US (occurrence: US)
  Receive Date: 20161102
  Receipt Date: 20161102
  Transmission Date: 20170207
  Serious: Yes (Death)
  Sender: FDA-Public Use
  Company Number: US-ROCHE-1849138

PATIENT

DRUGS (2)
  1. PULMOZYME [Concomitant]
     Active Substance: DORNASE ALFA
     Indication: PLEURAL INFECTION
     Route: 034
  2. ALTEPLASE [Suspect]
     Active Substance: ALTEPLASE
     Indication: PLEURAL INFECTION
     Dosage: 10 MG IN 50 ML OF 0.9%NACL
     Route: 034

REACTIONS (2)
  - Acute respiratory failure [Fatal]
  - Pneumonia [Fatal]
